FAERS Safety Report 8758597 (Version 1)
Quarter: 2012Q4

REPORT INFORMATION
  Report Type: Spontaneous
  Country: US (occurrence: None)
  Receive Date: 20120828
  Receipt Date: 20120828
  Transmission Date: 20130627
  Serious: No
  Sender: FDA-Public Use
  Company Number: None

PATIENT
  Age: 23 Year
  Sex: Female

DRUGS (1)
  1. AVONEX [Suspect]
     Route: 030
     Dates: start: 20120616, end: 20120801

REACTIONS (3)
  - Muscle spasms [None]
  - Fatigue [None]
  - Abasia [None]
